FAERS Safety Report 6427875-9 (Version None)
Quarter: 2009Q4

REPORT INFORMATION
  Report Type: 
  Country: None (occurrence: None)
  Receive Date: 20091105
  Receipt Date: 20091027
  Transmission Date: 20100525
  Serious: Yes (Other)
  Sender: FDA-Public Use
  Company Number: US-ABBOTT-09P-163-0605617-00

PATIENT
  Sex: Female
  Weight: 80.812 kg

DRUGS (2)
  1. HUMIRA [Suspect]
     Indication: RHEUMATOID ARTHRITIS
     Dates: start: 20010101, end: 20040101
  2. HUMIRA [Suspect]
     Dosage: PEN
     Route: 058
     Dates: start: 20090801, end: 20090901

REACTIONS (3)
  - ARTIFICIAL CROWN PROCEDURE [None]
  - PAIN [None]
  - TOOTH EXTRACTION [None]
